FAERS Safety Report 8359192-4 (Version None)
Quarter: 2012Q2

REPORT INFORMATION
  Report Type: 
  Country: None (occurrence: None)
  Receive Date: 20120511
  Receipt Date: 20120511
  Transmission Date: 20120825
  Serious: Yes (Life-Threatening, Other)
  Sender: FDA-Public Use
  Company Number: None

PATIENT
  Sex: Female
  Weight: 46.7205 kg

DRUGS (1)
  1. MICARDIS [Suspect]
     Indication: HYPERTENSION
     Dosage: 20MG  1 PER DAY
     Dates: start: 20120306, end: 20120318

REACTIONS (8)
  - PALPITATIONS [None]
  - MEMORY IMPAIRMENT [None]
  - HEADACHE [None]
  - EYE DISORDER [None]
  - FACE OEDEMA [None]
  - PERIPHERAL COLDNESS [None]
  - OEDEMA PERIPHERAL [None]
  - ANURIA [None]
